FAERS Safety Report 4421808-2 (Version None)
Quarter: 2004Q3

REPORT INFORMATION
  Report Type: 
  Country: None (occurrence: None)
  Receive Date: 20040809
  Receipt Date: 20040809
  Transmission Date: 20050211
  Serious: Yes (Hospitalization)
  Sender: FDA-Public Use
  Company Number: None

PATIENT
  Sex: Male
  Weight: 20.8655 kg

DRUGS (1)
  1. INTEGRILIN [Suspect]
     Indication: MYOCARDIAL INFARCTION
     Dosage: 20 MCG/KG MIN IV
     Route: 042
     Dates: start: 20040721, end: 20040721

REACTIONS (2)
  - MEDICATION ERROR [None]
  - THROMBOCYTOPENIA [None]
